FAERS Safety Report 14808573 (Version 4)
Quarter: 2018Q2

REPORT INFORMATION
  Report Type: Spontaneous
  Country: GR (occurrence: GR)
  Receive Date: 20180425
  Receipt Date: 20180523
  Transmission Date: 20180711
  Serious: Yes (Other)
  Sender: FDA-Public Use
  Company Number: GR-PFIZER INC-2018166817

PATIENT
  Sex: Female

DRUGS (4)
  1. FLUDARABINE [Suspect]
     Active Substance: FLUDARABINE PHOSPHATE
     Indication: ACUTE MYELOID LEUKAEMIA
     Dosage: TWO CYCLES
  2. IDARUBICIN HCL [Suspect]
     Active Substance: IDARUBICIN HYDROCHLORIDE
     Indication: ACUTE MYELOID LEUKAEMIA
     Dosage: TWO CYCLES
  3. CYTARABINE. [Suspect]
     Active Substance: CYTARABINE
     Dosage: TWO CYCLES
  4. CYTARABINE. [Suspect]
     Active Substance: CYTARABINE
     Indication: ACUTE MYELOID LEUKAEMIA
     Dosage: TWO CYCLES

REACTIONS (6)
  - Peritoneal mesothelioma malignant [Unknown]
  - Medullary thyroid cancer [Unknown]
  - Gene mutation [Unknown]
  - Meningioma [Unknown]
  - Second primary malignancy [Unknown]
  - Acquired gene mutation [Unknown]
